FAERS Safety Report 7438681-0 (Version None)
Quarter: 2011Q2

REPORT INFORMATION
  Report Type: 
  Country: None (occurrence: None)
  Receive Date: 20110426
  Receipt Date: 20110419
  Transmission Date: 20111010
  Serious: Yes (Death)
  Sender: FDA-Public Use
  Company Number: CA-CELGENEUS-028-21880-11042440

PATIENT
  Sex: Male

DRUGS (8)
  1. OXYCET [Concomitant]
     Route: 065
  2. REVLIMID [Suspect]
     Indication: MULTIPLE MYELOMA
     Dosage: 15 MILLIGRAM
     Route: 048
     Dates: start: 20110210
  3. ZOMETA [Concomitant]
     Route: 065
  4. PROTRIN [Concomitant]
     Route: 065
  5. CALCITE [Concomitant]
     Route: 065
  6. VITAMIN B-12 [Concomitant]
     Route: 048
  7. EPREX [Concomitant]
     Route: 065
  8. AVODART [Concomitant]
     Route: 065

REACTIONS (1)
  - DEATH [None]
